FAERS Safety Report 21619136 (Version 1)
Quarter: 2022Q4

REPORT INFORMATION
  Report Type: Spontaneous
  Country: US (occurrence: US)
  Receive Date: 20221120
  Receipt Date: 20221120
  Transmission Date: 20230113
  Serious: Yes (Death)
  Sender: FDA-Public Use
  Company Number: US-CTI BIOPHARMA-2022US03179

PATIENT

DRUGS (12)
  1. VONJO [Suspect]
     Active Substance: PACRITINIB
     Indication: Myelofibrosis
     Dosage: 200 MG, BID
     Route: 048
  2. JAKAFI [Concomitant]
     Active Substance: RUXOLITINIB
  3. CYTARABINE [Concomitant]
     Active Substance: CYTARABINE
  4. DECITABINE [Concomitant]
     Active Substance: DECITABINE
  5. ACYCLOVIR [Concomitant]
     Active Substance: ACYCLOVIR
  6. ALLOPURINOL [Concomitant]
     Active Substance: ALLOPURINOL
  7. AMLODIPINE [Concomitant]
     Active Substance: AMLODIPINE BESYLATE
  8. ATENOLOL [Concomitant]
     Active Substance: ATENOLOL
  9. DAURISMO [Concomitant]
     Active Substance: GLASDEGIB
  10. LEVAQUIN [Concomitant]
     Active Substance: LEVOFLOXACIN
  11. ONDANSETRON [Concomitant]
     Active Substance: ONDANSETRON
  12. RETACRIT [Concomitant]
     Active Substance: EPOETIN ALFA-EPBX

REACTIONS (1)
  - Death [Fatal]

NARRATIVE: CASE EVENT DATE: 20220101
